FAERS Safety Report 9814610 (Version 1)
Quarter: 2014Q1

REPORT INFORMATION
  Report Type: Spontaneous
  Country: FR (occurrence: FR)
  Receive Date: 20140113
  Receipt Date: 20140113
  Transmission Date: 20141002
  Serious: Yes (Other)
  Sender: FDA-Public Use
  Company Number: PHHY2014FR002748

PATIENT
  Age: 86 Year
  Sex: Male

DRUGS (6)
  1. EUCREAS [Suspect]
     Dosage: 1 DF, (1000 MG METF AND 50 MG VILD)
     Route: 048
     Dates: end: 20131207
  2. EXELON [Suspect]
     Route: 048
  3. RAMIPRIL [Suspect]
     Route: 048
  4. SIMVASTATIN [Suspect]
     Route: 048
  5. KARDEGIC [Suspect]
     Route: 048
  6. LEVOTHYROX [Suspect]
     Route: 048

REACTIONS (1)
  - Pemphigoid [Not Recovered/Not Resolved]
